FAERS Safety Report 16059889 (Version 1)
Quarter: 2019Q1

REPORT INFORMATION
  Report Type: Other
  Country: DE (occurrence: DE)
  Receive Date: 20190311
  Receipt Date: 20190311
  Transmission Date: 20190418
  Serious: Yes (Hospitalization)
  Sender: FDA-Public Use
  Company Number: DE-CELLTRION INC.-2019DE019300

PATIENT

DRUGS (2)
  1. PREDNISOLON [Concomitant]
     Active Substance: PREDNISOLONE
     Dosage: UNK
  2. RITUXIMAB (UNKNOWN) [Suspect]
     Active Substance: RITUXIMAB
     Indication: RHEUMATOID ARTHRITIS
     Dosage: UNK
     Route: 065

REACTIONS (1)
  - Non-small cell lung cancer recurrent [Not Recovered/Not Resolved]

NARRATIVE: CASE EVENT DATE: 201802
